FAERS Safety Report 14021269 (Version 2)
Quarter: 2017Q4

REPORT INFORMATION
  Report Type: Spontaneous
  Country: US (occurrence: US)
  Receive Date: 20170928
  Receipt Date: 20171101
  Transmission Date: 20180321
  Serious: Yes (Other)
  Sender: FDA-Public Use
  Company Number: US-ASTRAZENECA-2017SE98728

PATIENT
  Sex: Male

DRUGS (3)
  1. SEROQUEL [Suspect]
     Active Substance: QUETIAPINE FUMARATE
     Indication: INSOMNIA
     Route: 048
  2. AMBIEN [Concomitant]
     Active Substance: ZOLPIDEM TARTRATE
     Indication: INSOMNIA
     Dosage: AS NEEDED
  3. SEROQUEL [Suspect]
     Active Substance: QUETIAPINE FUMARATE
     Indication: INSOMNIA
     Dosage: GENERIC, ONE DOSAGE FORM DAILY
     Route: 048

REACTIONS (17)
  - Thinking abnormal [Unknown]
  - Drug ineffective for unapproved indication [Unknown]
  - Intentional product use issue [Unknown]
  - Irritability [Unknown]
  - Mood altered [Unknown]
  - Abnormal behaviour [Unknown]
  - Headache [Unknown]
  - Feeding disorder [Unknown]
  - Malaise [Unknown]
  - Panic attack [Unknown]
  - Suicidal ideation [Unknown]
  - Suffocation feeling [Unknown]
  - Product use in unapproved indication [Unknown]
  - Off label use [Unknown]
  - Feeling abnormal [Unknown]
  - Agitation [Unknown]
  - Aggression [Unknown]
